FAERS Safety Report 25298893 (Version 1)
Quarter: 2025Q2

REPORT INFORMATION
  Report Type: Report from Study
  Country: US (occurrence: US)
  Receive Date: 20250512
  Receipt Date: 20250512
  Transmission Date: 20250717
  Serious: Yes (Hospitalization)
  Sender: ALEXION PHARMACEUTICALS
  Company Number: US-AstraZeneca-CH-00865570A

PATIENT
  Age: 51 Year
  Weight: 98 kg

DRUGS (1)
  1. OSIMERTINIB [Suspect]
     Active Substance: OSIMERTINIB
     Indication: Lung neoplasm malignant
     Dosage: 80 MILLIGRAM, QD

REACTIONS (4)
  - Dyspnoea [Unknown]
  - White blood cell count increased [Unknown]
  - Thrombosis [Unknown]
  - Product dose omission issue [Unknown]
